FAERS Safety Report 7768452-7 (Version None)
Quarter: 2011Q3

REPORT INFORMATION
  Report Type: 
  Country: None (occurrence: None)
  Receive Date: 20110922
  Receipt Date: 20110224
  Transmission Date: 20111222
  Serious: No
  Sender: FDA-Public Use
  Company Number: US-ASTRAZENECA-2011SE10475

PATIENT
  Age: 43 Year
  Sex: Male
  Weight: 99.8 kg

DRUGS (4)
  1. SEROQUEL XR [Suspect]
     Indication: BIPOLAR I DISORDER
     Route: 048
     Dates: start: 20100601
  2. SEROQUEL XR [Suspect]
     Route: 048
     Dates: start: 20100101, end: 20101101
  3. SEROQUEL XR [Suspect]
     Route: 048
  4. AMBIEN [Concomitant]
     Dosage: PRN

REACTIONS (3)
  - SOMNOLENCE [None]
  - BLOOD TRIGLYCERIDES INCREASED [None]
  - DRUG DOSE OMISSION [None]
